FAERS Safety Report 21368049 (Version 1)
Quarter: 2022Q3

REPORT INFORMATION
  Report Type: Spontaneous
  Country: US (occurrence: US)
  Receive Date: 20220923
  Receipt Date: 20220923
  Transmission Date: 20221027
  Serious: No
  Sender: FDA-Public Use
  Company Number: US-SA-SAC20220921000541

PATIENT
  Age: 16 Year
  Sex: Female

DRUGS (9)
  1. DUPIXENT [Suspect]
     Active Substance: DUPILUMAB
     Indication: Dermatitis atopic
     Dosage: 1 DF, QOW
     Route: 058
     Dates: start: 20210727
  2. FLUOXETINE [Concomitant]
     Active Substance: FLUOXETINE HYDROCHLORIDE
  3. PRAZOSIN [Concomitant]
     Active Substance: PRAZOSIN
  4. BUPROPION [Concomitant]
     Active Substance: BUPROPION
  5. TACROLIMUS [Concomitant]
     Active Substance: TACROLIMUS
  6. MUPIROCIN [Concomitant]
     Active Substance: MUPIROCIN
  7. OMEPRAZOLE [Concomitant]
     Active Substance: OMEPRAZOLE
  8. ALBUTEROL [Concomitant]
     Active Substance: ALBUTEROL
  9. ESTRADIOL [Concomitant]
     Active Substance: ESTRADIOL

REACTIONS (1)
  - Eating disorder [Unknown]
